FAERS Safety Report 8773662 (Version 2)
Quarter: 2013Q1

REPORT INFORMATION
  Report Type: Spontaneous
  Country: BR (occurrence: BR)
  Receive Date: 20120907
  Receipt Date: 20130319
  Transmission Date: 20140127
  Serious: Yes (Other)
  Sender: FDA-Public Use
  Company Number: PHHY2012BR077090

PATIENT
  Sex: Female

DRUGS (7)
  1. DIOVAN [Suspect]
     Indication: HYPERTENSION
     Dosage: 1 TABLET (80 MG) A DAY
     Route: 048
  2. BONVIVA [Concomitant]
     Indication: BONE DISORDER
     Dosage: UNK UKN, UNK
  3. RIVOTRIL [Concomitant]
     Indication: SLEEP DISORDER
     Dosage: 6 DRP (2.5 MG), A DAY
     Route: 048
  4. SELOZOK [Concomitant]
     Indication: CARDIAC DISORDER
     Dosage: 2 DF (25 MG), A DAY
     Route: 048
  5. CITTA [Concomitant]
     Indication: DEPRESSION
     Dosage: 1 DF (20 MG), A DAY
     Route: 048
     Dates: start: 2010
  6. CITONEUTIN 5000 [Concomitant]
     Indication: VITAMIN B12 ABNORMAL
     Dosage: 1 DF, AFTER MEALS A DAY
     Route: 048
  7. VITAMIN B12 [Concomitant]

REACTIONS (4)
  - Aortic aneurysm [Not Recovered/Not Resolved]
  - Weight increased [Recovering/Resolving]
  - Cystitis [Recovering/Resolving]
  - Dysuria [Not Recovered/Not Resolved]
